FAERS Safety Report 11147524 (Version 1)
Quarter: 2015Q2

REPORT INFORMATION
  Report Type: Report from Study
  Country: CO (occurrence: CO)
  Receive Date: 20150529
  Receipt Date: 20150529
  Transmission Date: 20150821
  Serious: Yes (Hospitalization)
  Sender: FDA-Public Use
  Company Number: CO-ROCHE-1584912

PATIENT
  Sex: Female
  Weight: 80 kg

DRUGS (1)
  1. XOLAIR [Suspect]
     Active Substance: OMALIZUMAB
     Indication: CHRONIC SPONTANEOUS URTICARIA
     Dosage: 2 AMPOULES
     Route: 058

REACTIONS (3)
  - Eye inflammation [Unknown]
  - Inflammation [Unknown]
  - Rash generalised [Unknown]
